FAERS Safety Report 7024588-X (Version None)
Quarter: 2010Q4

REPORT INFORMATION
  Report Type: 
  Country: None (occurrence: None)
  Receive Date: 20101001
  Receipt Date: 20100920
  Transmission Date: 20110411
  Serious: Yes (Hospitalization, Other)
  Sender: FDA-Public Use
  Company Number: GB-PFIZER INC-2010093693

PATIENT
  Age: 64 Year
  Sex: Female

DRUGS (6)
  1. PHENYTOIN SODIUM CAP [Suspect]
     Indication: CONVULSION
     Dosage: 300 MG, UNK
     Route: 048
     Dates: start: 20100629, end: 20100815
  2. PHENYTOIN SODIUM CAP [Suspect]
     Indication: METASTASES TO CENTRAL NERVOUS SYSTEM
  3. WARFARIN [Concomitant]
     Dosage: 5 MG, UNK
  4. IBANDRONIC ACID [Concomitant]
     Dosage: 50 MG, UNK
  5. CITRAZINE [Concomitant]
     Dosage: 10 MG, UNK
  6. DEXAMETHASONE [Concomitant]
     Dosage: 4 MG, UNK
     Route: 048
     Dates: start: 20100801

REACTIONS (3)
  - ERYTHEMA [None]
  - RASH GENERALISED [None]
  - SWELLING FACE [None]
